FAERS Safety Report 9163407 (Version 2)
Quarter: 2013Q2

REPORT INFORMATION
  Report Type: Spontaneous
  Country: GB (occurrence: GB)
  Receive Date: 20130314
  Receipt Date: 20130424
  Transmission Date: 20140414
  Serious: Yes (Other)
  Sender: FDA-Public Use
  Company Number: GB-B.I. PHARMACEUTICALS,INC./RIDGEFIELD-2013-UK-00368UK

PATIENT
  Age: 76 Year
  Sex: Male

DRUGS (8)
  1. PRADAXA [Suspect]
     Indication: THROMBOSIS PROPHYLAXIS
     Dosage: 220 MG
     Route: 048
     Dates: start: 20130227
  2. DEXAMETHASONE [Concomitant]
     Dosage: 8 MG
  3. ALLOPURINOL [Concomitant]
     Dosage: 300 MG
  4. BISOPROLOL [Concomitant]
     Dosage: 2.5 MG
  5. BENDROFLUMETHIAZIDE [Concomitant]
     Dosage: 2.5 MG
  6. OMEPRAZOLE [Concomitant]
     Dosage: 20 MG
  7. DIGOXIN [Concomitant]
     Dosage: 125 MCG
  8. FLUCONAZOLE [Concomitant]
     Dosage: 50 MG
     Route: 048
     Dates: start: 20130304

REACTIONS (2)
  - Deep vein thrombosis [Unknown]
  - Off label use [Unknown]
